FAERS Safety Report 25796321 (Version 1)
Quarter: 2025Q3

REPORT INFORMATION
  Report Type: Spontaneous
  Country: US (occurrence: None)
  Receive Date: 20250912
  Receipt Date: 20250912
  Transmission Date: 20251021
  Serious: Yes (Hospitalization, Disabling, Other)
  Sender: FDA-CTU
  Company Number: None

PATIENT
  Age: 38 Year
  Sex: Female
  Weight: 63 kg

DRUGS (2)
  1. CELEBREX [Suspect]
     Active Substance: CELECOXIB
     Indication: Pain
     Dosage: FREQUENCY : DAILY;?
     Route: 048
     Dates: start: 20250701, end: 20250912
  2. CELEBREX [Suspect]
     Active Substance: CELECOXIB
     Indication: Inflammation

REACTIONS (16)
  - Nausea [None]
  - Malaise [None]
  - Asthenia [None]
  - Protein total decreased [None]
  - Haemoglobin decreased [None]
  - Melaena [None]
  - Fatigue [None]
  - Bladder pain [None]
  - Inflammation [None]
  - Confusional state [None]
  - Amnesia [None]
  - Brain fog [None]
  - Irritability [None]
  - Insomnia [None]
  - Depression [None]
  - Educational problem [None]

NARRATIVE: CASE EVENT DATE: 20250801
